FAERS Safety Report 25262048 (Version 3)
Quarter: 2025Q3

REPORT INFORMATION
  Report Type: Report from Study
  Country: US (occurrence: US)
  Receive Date: 20250502
  Receipt Date: 20250709
  Transmission Date: 20251021
  Serious: Yes (Hospitalization)
  Sender: ABBVIE
  Company Number: US-ABBVIE-6249043

PATIENT
  Age: 63 Year
  Sex: Female

DRUGS (4)
  1. SKYRIZI [Suspect]
     Active Substance: RISANKIZUMAB-RZAA
     Indication: Psoriatic arthropathy
     Route: 058
     Dates: start: 20241108, end: 20241108
  2. SKYRIZI [Suspect]
     Active Substance: RISANKIZUMAB-RZAA
     Indication: Psoriasis
     Route: 058
  3. SKYRIZI [Suspect]
     Active Substance: RISANKIZUMAB-RZAA
     Route: 058
     Dates: start: 202501, end: 202501
  4. SKYRIZI [Suspect]
     Active Substance: RISANKIZUMAB-RZAA
     Dosage: DOSAGE: 150 MG/ML FORM STRENGTH 150 MG/ML
     Route: 058

REACTIONS (18)
  - Diverticulitis [Recovered/Resolved]
  - Weight decreased [Not Recovered/Not Resolved]
  - Feeding disorder [Unknown]
  - Spider vein [Not Recovered/Not Resolved]
  - Injection site haemorrhage [Recovered/Resolved]
  - Influenza [Recovered/Resolved]
  - Fatigue [Not Recovered/Not Resolved]
  - Pain [Not Recovered/Not Resolved]
  - Therapeutic product effect incomplete [Unknown]
  - Hospitalisation [Unknown]
  - Grip strength decreased [Not Recovered/Not Resolved]
  - Headache [Unknown]
  - Hyperhidrosis [Unknown]
  - Chills [Unknown]
  - Loss of personal independence in daily activities [Not Recovered/Not Resolved]
  - General physical health deterioration [Not Recovered/Not Resolved]
  - Product dose omission in error [Unknown]
  - Arthralgia [Not Recovered/Not Resolved]

NARRATIVE: CASE EVENT DATE: 20241101
